FAERS Safety Report 9408509 (Version 1)
Quarter: 2013Q3

REPORT INFORMATION
  Report Type: Spontaneous
  Country: US (occurrence: US)
  Receive Date: 20130718
  Receipt Date: 20130718
  Transmission Date: 20140515
  Serious: No
  Sender: FDA-Public Use
  Company Number: US-ASTELLAS-2013US005599

PATIENT
  Sex: Male

DRUGS (3)
  1. VESICARE [Suspect]
     Indication: PROSTATOMEGALY
     Dosage: 5 MG, UNKNOWN/D
     Route: 048
     Dates: start: 201305, end: 201305
  2. ANALGESICS [Concomitant]
     Indication: PAIN
     Dosage: UNK
     Route: 065
  3. UNSPECIFIED MEDICATIONS [Concomitant]
     Indication: PRODUCT USED FOR UNKNOWN INDICATION
     Dosage: UNK
     Route: 065

REACTIONS (2)
  - Off label use [Unknown]
  - Drug ineffective [Unknown]
